FAERS Safety Report 18571050 (Version 1)
Quarter: 2020Q4

REPORT INFORMATION
  Report Type: Spontaneous
  Country: US (occurrence: US)
  Receive Date: 20201202
  Receipt Date: 20201202
  Transmission Date: 20210114
  Serious: No
  Sender: FDA-Public Use
  Company Number: US-NOVEN PHARMACEUTICALS, INC.-2020US005607

PATIENT
  Age: 65 Year
  Sex: Female
  Weight: 53.52 kg

DRUGS (3)
  1. MINIVELLE [Suspect]
     Active Substance: ESTRADIOL
     Dosage: 0.025 MG, (1 TRANSDERMAL PATCH EVERY 3-4 DAYS)
     Route: 062
     Dates: end: 202006
  2. MINIVELLE [Suspect]
     Active Substance: ESTRADIOL
     Indication: MENOPAUSAL SYMPTOMS
     Dosage: USING TWO, 0.025 MG, (1 TRANSDERMAL PATCH EVERY 3-4 DAYS)
     Route: 062
     Dates: start: 202008
  3. MINIVELLE [Suspect]
     Active Substance: ESTRADIOL
     Dosage: 0.05 MG, (1 TRANSDERMAL PATCH EVERY 3-4 DAYS)
     Route: 062
     Dates: start: 202006, end: 202008

REACTIONS (2)
  - Wrong technique in product usage process [Not Recovered/Not Resolved]
  - No adverse event [Unknown]

NARRATIVE: CASE EVENT DATE: 202008
